FAERS Safety Report 17413780 (Version 1)
Quarter: 2020Q1

REPORT INFORMATION
  Report Type: Spontaneous
  Country: US (occurrence: US)
  Receive Date: 20200213
  Receipt Date: 20200213
  Transmission Date: 20200409
  Serious: No
  Sender: FDA-Public Use
  Company Number: None

PATIENT
  Age: 31 Year
  Sex: Female

DRUGS (6)
  1. BUSPIRONE [Concomitant]
     Active Substance: BUSPIRONE HYDROCHLORIDE
     Dates: start: 20191226
  2. LEVONOR/ETHI TAB ESTRADIOL [Concomitant]
     Dates: start: 20191102
  3. LEVOTHYROXIN TAB 50MCG [Concomitant]
     Dates: start: 20200212
  4. AMETHIA LO TAB [Concomitant]
     Dates: start: 20200202
  5. STELARA [Suspect]
     Active Substance: USTEKINUMAB
     Indication: PSORIASIS
     Dosage: ?          OTHER FREQUENCY:WK 4 THEN Q 12WKS;?
     Route: 058
     Dates: start: 20191130
  6. LEVONOR/ETHI TAB ESTRADIOL [Concomitant]
     Dates: start: 20191106

REACTIONS (4)
  - Condition aggravated [None]
  - Fatigue [None]
  - Pain [None]
  - Therapy cessation [None]

NARRATIVE: CASE EVENT DATE: 20200212
